FAERS Safety Report 7306266-2 (Version None)
Quarter: 2011Q1

REPORT INFORMATION
  Report Type: 
  Country: None (occurrence: None)
  Receive Date: 20110222
  Receipt Date: 20110209
  Transmission Date: 20110831
  Serious: Yes (Other)
  Sender: FDA-Public Use
  Company Number: PHHY2011FR11204

PATIENT
  Age: 72 Year
  Sex: Male
  Weight: 55 kg

DRUGS (2)
  1. RASILEZ [Suspect]
     Dosage: 0.5 DF, UNK
     Route: 048
  2. RASILEZ [Suspect]
     Dosage: 300 MG, (1 DF), IN THE MORNING

REACTIONS (4)
  - FATIGUE [None]
  - INCORRECT DOSE ADMINISTERED [None]
  - ACCIDENT [None]
  - MALAISE [None]
